FAERS Safety Report 25938391 (Version 1)
Quarter: 2025Q4

REPORT INFORMATION
  Report Type: Spontaneous
  Country: EU (occurrence: EU)
  Receive Date: 20251019
  Receipt Date: 20251019
  Transmission Date: 20260117
  Serious: Yes (Other)
  Sender: ACCORD
  Company Number: None

PATIENT
  Age: 85 Year
  Sex: Female
  Weight: 65 kg

DRUGS (7)
  1. SERTRALINE [Suspect]
     Active Substance: SERTRALINE HYDROCHLORIDE
     Indication: Anxiety disorder
     Dosage: 1 X PER DAY 1 PIECE, STRENGTH: 100 MG
     Dates: start: 20250520
  2. DILTIAZEM [Concomitant]
     Active Substance: DILTIAZEM
     Dosage: MODIFIED-RELEASE CAPSULE, 200 MG (MILLIGRAM)
  3. ASPIRIN [Concomitant]
     Active Substance: ASPIRIN
     Dosage: TABLET, 80 MG (MILLIGRAM)
  4. ISOSORBIDE MONONITRATE [Concomitant]
     Active Substance: ISOSORBIDE MONONITRATE
     Dosage: MODIFIED-RELEASE TABLET, 60 MG (MILLIGRAM)
  5. PANTOPRAZOLE [Concomitant]
     Active Substance: PANTOPRAZOLE
     Dosage: GASTRO-RESISTANT TABLET, 20 MG (MILLIGRAM)
  6. CRESTOR [Concomitant]
     Active Substance: ROSUVASTATIN CALCIUM
     Dosage: TABLET, 10 MG (MILLIGRAM)
  7. SERTRALINE [Suspect]
     Active Substance: SERTRALINE HYDROCHLORIDE
     Indication: Anxiety disorder
     Dosage: 1 X PER DAY 1 PIECE, STRENGTH: 100 MG
     Dates: start: 20250616

REACTIONS (1)
  - Colitis [Recovered/Resolved]
